FAERS Safety Report 6654203-6 (Version None)
Quarter: 2010Q1

REPORT INFORMATION
  Report Type: 
  Country: None (occurrence: None)
  Receive Date: 20100326
  Receipt Date: 20100324
  Transmission Date: 20100710
  Serious: Yes (Other)
  Sender: FDA-Public Use
  Company Number: RU-JNJCH-2010007149

PATIENT
  Sex: Male

DRUGS (1)
  1. VISINE EYE DROPS [Suspect]
     Indication: DRUG USE FOR UNKNOWN INDICATION
     Dosage: TEXT:UNKNOWN
     Route: 047

REACTIONS (3)
  - APPLICATION SITE PAIN [None]
  - CONDITION AGGRAVATED [None]
  - VISUAL ACUITY REDUCED [None]
